FAERS Safety Report 7339250-3 (Version None)
Quarter: 2011Q1

REPORT INFORMATION
  Report Type: 
  Country: None (occurrence: None)
  Receive Date: 20110308
  Receipt Date: 20110225
  Transmission Date: 20110831
  Serious: Yes (Hospitalization, Other)
  Sender: FDA-Public Use
  Company Number: US-ELI_LILLY_AND_COMPANY-US201007000881

PATIENT
  Sex: Female
  Weight: 99.32 kg

DRUGS (18)
  1. FORTEO [Suspect]
     Dosage: 20 UG, DAILY (1/D)
  2. PROMETHAZINE [Concomitant]
  3. ACIDOPHILUS [Concomitant]
  4. PREDNISONE [Concomitant]
  5. ATIVAN [Concomitant]
  6. LEXAPRO [Concomitant]
  7. FENTANYL [Concomitant]
  8. VENTOLIN [Concomitant]
  9. BENTYL [Concomitant]
  10. FORTEO [Suspect]
     Indication: OSTEOPOROSIS
     Dosage: 20 UG, DAILY (1/D)
  11. PERCOCET [Concomitant]
  12. XANAX [Concomitant]
  13. TORSEMIDE [Concomitant]
  14. SYNTHROID [Concomitant]
  15. ADVAIR DISKUS 100/50 [Concomitant]
  16. PROTONIX [Concomitant]
  17. OXYGEN [Concomitant]
  18. POTASSIUM [Concomitant]

REACTIONS (4)
  - KIDNEY INFECTION [None]
  - ORGANISING PNEUMONIA [None]
  - PAIN [None]
  - CYSTITIS [None]
